FAERS Safety Report 7648500-5 (Version None)
Quarter: 2011Q3

REPORT INFORMATION
  Report Type: 
  Country: None (occurrence: None)
  Receive Date: 20110801
  Receipt Date: 20110721
  Transmission Date: 20111222
  Serious: Yes (Hospitalization)
  Sender: FDA-Public Use
  Company Number: IT-BAXTER-2011BH021936

PATIENT
  Age: 45 Year
  Sex: Female

DRUGS (3)
  1. FLUOROURACIL [Suspect]
     Indication: BREAST CANCER
     Route: 042
     Dates: start: 20110613, end: 20110620
  2. CYCLOPHOSPHAMIDE [Suspect]
     Indication: BREAST CANCER
     Route: 042
     Dates: start: 20110613, end: 20110613
  3. METHOTREXATE [Suspect]
     Indication: BREAST CANCER
     Route: 042
     Dates: start: 20110613, end: 20110620

REACTIONS (4)
  - ORAL CANDIDIASIS [None]
  - MUCOSAL INFLAMMATION [None]
  - LEUKOPENIA [None]
  - HYPERPYREXIA [None]
